FAERS Safety Report 8938064 (Version 1)
Quarter: 2012Q4

REPORT INFORMATION
  Report Type: 
  Country: ES (occurrence: ES)
  Receive Date: 20121203
  Receipt Date: 20121203
  Transmission Date: 20130627
  Serious: Yes (Hospitalization)
  Sender: FDA-Public Use
  Company Number: ES-MYLANLABS-2012S1024024

PATIENT
  Age: 15 Year
  Sex: Female

DRUGS (4)
  1. TRETINOIN [Suspect]
     Indication: ACUTE PROMYELOCYTIC LEUKAEMIA
     Dosage: 20mg bid (25 mg/m2/day)
     Route: 048
  2. IDARUBICIN [Concomitant]
     Indication: ACUTE PROMYELOCYTIC LEUKAEMIA
     Dosage: 18mg (12 mg/m2/day) on d2, 4, 6, and 8
     Route: 040
  3. PIPERACILLIN W/TAZOBACTAM          /01606301/ [Concomitant]
     Indication: FEBRILE NEUTROPENIA
     Route: 065
  4. TEICOPLANIN [Concomitant]
     Route: 065

REACTIONS (1)
  - Benign intracranial hypertension [Recovered/Resolved]
